FAERS Safety Report 18853998 (Version 2)
Quarter: 2021Q2

REPORT INFORMATION
  Report Type: Report from Study
  Country: US (occurrence: US)
  Receive Date: 20210205
  Receipt Date: 20210430
  Transmission Date: 20210717
  Serious: Yes (Other)
  Sender: FDA-Public Use
  Company Number: US-EMD SERONO-9157967

PATIENT
  Age: 33 Year
  Sex: Female

DRUGS (3)
  1. REBIF [Suspect]
     Active Substance: INTERFERON BETA-1A
     Indication: MULTIPLE SCLEROSIS
     Dosage: TITRATION DOSING
     Route: 058
     Dates: start: 20200326, end: 2020
  2. REBIF [Suspect]
     Active Substance: INTERFERON BETA-1A
     Route: 058
     Dates: start: 2020
  3. REBIF [Suspect]
     Active Substance: INTERFERON BETA-1A
     Route: 058
     Dates: start: 2020, end: 20201226

REACTIONS (6)
  - Generalised tonic-clonic seizure [Unknown]
  - Blepharospasm [Unknown]
  - Influenza like illness [Unknown]
  - Neoplasm [Unknown]
  - Injection site swelling [Recovered/Resolved]
  - Magnetic resonance imaging abnormal [Unknown]

NARRATIVE: CASE EVENT DATE: 2020
